FAERS Safety Report 8848307 (Version 1)
Quarter: 2012Q4

REPORT INFORMATION
  Report Type: 
  Country: CA (occurrence: CA)
  Receive Date: 20121018
  Receipt Date: 20121018
  Transmission Date: 20130627
  Serious: Yes (Other)
  Sender: FDA-Public Use
  Company Number: CA-MYLANLABS-2012S1020933

PATIENT
  Age: 49 Year
  Sex: Male

DRUGS (1)
  1. AMIODARONE [Suspect]
     Indication: ATRIAL FLUTTER
     Route: 065

REACTIONS (2)
  - Hyperthyroidism [Unknown]
  - Thyroiditis [Unknown]
